FAERS Safety Report 13113120 (Version 1)
Quarter: 2017Q1

REPORT INFORMATION
  Report Type: Spontaneous
  Country: US (occurrence: US)
  Receive Date: 20170113
  Receipt Date: 20170113
  Transmission Date: 20170428
  Serious: Yes (Life-Threatening, Hospitalization)
  Sender: FDA-Public Use
  Company Number: None

PATIENT
  Age: 38 Year
  Sex: Female
  Weight: 67.5 kg

DRUGS (4)
  1. APIXABAN [Concomitant]
     Active Substance: APIXABAN
  2. CALCIUM [Concomitant]
     Active Substance: CALCIUM
  3. NUVARING [Suspect]
     Active Substance: ETHINYL ESTRADIOL\ETONOGESTREL
     Indication: CONTRACEPTION
     Dosage: ?          OTHER FREQUENCY:MONTHLY;?
     Route: 067
     Dates: start: 20160401, end: 20160610
  4. VITAMIN D [Concomitant]
     Active Substance: CHOLECALCIFEROL

REACTIONS (2)
  - Pulmonary embolism [None]
  - Blood pressure decreased [None]

NARRATIVE: CASE EVENT DATE: 20160613
